FAERS Safety Report 22654532 (Version 1)
Quarter: 2023Q2

REPORT INFORMATION
  Report Type: Spontaneous
  Country: CN (occurrence: CN)
  Receive Date: 20230629
  Receipt Date: 20230629
  Transmission Date: 20230722
  Serious: Yes (Disabling, Other)
  Sender: FDA-Public Use
  Company Number: CN-009507513-2306CHN011771

PATIENT
  Age: 16 Year
  Sex: Male
  Weight: 90 kg

DRUGS (1)
  1. NOXAFIL [Suspect]
     Active Substance: POSACONAZOLE
     Indication: Infection
     Dosage: 5 ML, TID
     Route: 048
     Dates: start: 20230606, end: 20230611

REACTIONS (1)
  - Drug-induced liver injury [Recovering/Resolving]

NARRATIVE: CASE EVENT DATE: 20230611
